FAERS Safety Report 6981306-9 (Version None)
Quarter: 2010Q3

REPORT INFORMATION
  Report Type: 
  Country: None (occurrence: None)
  Receive Date: 20100914
  Receipt Date: 20080807
  Transmission Date: 20110219
  Serious: Yes (Hospitalization)
  Sender: FDA-Public Use
  Company Number: US-US-EMD SERONO, INC.-239302K07USA

PATIENT
  Sex: Male
  Weight: 102 kg

DRUGS (20)
  1. REBIF [Suspect]
     Indication: MULTIPLE SCLEROSIS
     Route: 058
     Dates: start: 20050501, end: 20071101
  2. PROVIGIL [Concomitant]
     Indication: FATIGUE
     Route: 065
     Dates: start: 20070618, end: 20071217
  3. PROVIGIL [Concomitant]
     Route: 048
     Dates: start: 20070328, end: 20070101
  4. BACLOFEN [Concomitant]
     Indication: MULTIPLE SCLEROSIS
     Route: 065
     Dates: start: 20061204, end: 20071104
  5. LIPITOR [Concomitant]
     Indication: BLOOD CHOLESTEROL INCREASED
     Route: 048
     Dates: start: 20070912, end: 20071217
  6. LIPITOR [Concomitant]
     Route: 048
     Dates: start: 20070328, end: 20070101
  7. ATENOLOL [Concomitant]
     Indication: HYPERTENSION
     Route: 048
     Dates: start: 20070328, end: 20080409
  8. FLOMAX [Concomitant]
     Indication: BLADDER DISORDER
     Route: 065
     Dates: start: 20050822, end: 20080101
  9. AMANTADINE [Concomitant]
     Dates: start: 20050914, end: 20060515
  10. VALIUM [Concomitant]
     Route: 048
     Dates: start: 20051128, end: 20061204
  11. NORCO [Concomitant]
     Indication: PAIN
     Route: 048
     Dates: start: 20050914, end: 20051205
  12. PHENAZOPYRIDINE HCL TAB [Concomitant]
     Route: 048
     Dates: start: 20050922, end: 20051205
  13. COLACE [Concomitant]
     Route: 048
     Dates: start: 20050922, end: 20051205
  14. VICODIN [Concomitant]
     Route: 048
     Dates: start: 20050922, end: 20051205
  15. UROXATRAL [Concomitant]
     Route: 048
     Dates: start: 20060928, end: 20070101
  16. UROXATRAL [Concomitant]
     Dates: start: 20070806, end: 20071015
  17. NEURONTIN [Concomitant]
     Route: 048
     Dates: start: 20060621, end: 20071015
  18. NEURONTIN [Concomitant]
     Route: 048
     Dates: start: 20070101, end: 20071217
  19. ZANTAC [Concomitant]
     Route: 048
     Dates: start: 20061015, end: 20061204
  20. AMBIEN [Concomitant]
     Route: 048
     Dates: start: 20061016, end: 20070328

REACTIONS (39)
  - ACCIDENT [None]
  - ANAEMIA [None]
  - ARTHRALGIA [None]
  - ATAXIA [None]
  - BACK PAIN [None]
  - BALANCE DISORDER [None]
  - CELLS IN URINE [None]
  - CHEST PAIN [None]
  - CHOKING [None]
  - CONTUSION [None]
  - COORDINATION ABNORMAL [None]
  - CYST [None]
  - DIVERTICULUM [None]
  - DYSARTHRIA [None]
  - ERECTILE DYSFUNCTION [None]
  - FALL [None]
  - FATIGUE [None]
  - FEELING ABNORMAL [None]
  - HAEMANGIOMA OF LIVER [None]
  - HEMIPARESIS [None]
  - HIATUS HERNIA [None]
  - LOW DENSITY LIPOPROTEIN INCREASED [None]
  - LYMPHOCYTE COUNT DECREASED [None]
  - MALAISE [None]
  - MULTIPLE SCLEROSIS RELAPSE [None]
  - MUSCLE TIGHTNESS [None]
  - NEPHROLITHIASIS [None]
  - NEUROGENIC BLADDER [None]
  - NEUTROPHIL COUNT INCREASED [None]
  - PARAESTHESIA [None]
  - PERIORBITAL CELLULITIS [None]
  - PERONEAL NERVE PALSY [None]
  - RED BLOOD CELL SEDIMENTATION RATE INCREASED [None]
  - REFLUX LARYNGITIS [None]
  - SARCOIDOSIS [None]
  - SENSATION OF HEAVINESS [None]
  - SENSORY LOSS [None]
  - TREMOR [None]
  - VISION BLURRED [None]
